APPROVED DRUG PRODUCT: CARDURA XL
Active Ingredient: DOXAZOSIN MESYLATE
Strength: EQ 4MG BASE
Dosage Form/Route: TABLET, EXTENDED RELEASE;ORAL
Application: N021269 | Product #001
Applicant: VIATRIS SPECIALTY LLC
Approved: Feb 22, 2005 | RLD: Yes | RS: No | Type: RX